FAERS Safety Report 6189031-1 (Version None)
Quarter: 2009Q2

REPORT INFORMATION
  Report Type: 
  Country: None (occurrence: None)
  Receive Date: 20090513
  Receipt Date: 20090506
  Transmission Date: 20091009
  Serious: Yes (Hospitalization)
  Sender: FDA-Public Use
  Company Number: US-ELI_LILLY_AND_COMPANY-US200905001273

PATIENT
  Sex: Male
  Weight: 92.517 kg

DRUGS (4)
  1. BYETTA [Suspect]
     Indication: TYPE 2 DIABETES MELLITUS
     Dosage: 5 UG, 2/D
     Route: 058
     Dates: start: 20060101, end: 20060101
  2. BYETTA [Suspect]
     Dosage: 10 UG, 2/D
     Route: 058
     Dates: start: 20060101
  3. METFORMIN HCL [Concomitant]
     Indication: TYPE 2 DIABETES MELLITUS
     Dosage: 2000 MG, EACH EVENING
     Route: 048
  4. STARLIX [Concomitant]
     Indication: BLOOD GLUCOSE INCREASED
     Dosage: UNK, AS NEEDED

REACTIONS (14)
  - BACK INJURY [None]
  - BACK PAIN [None]
  - BLOOD GLUCOSE INCREASED [None]
  - BONE CYST [None]
  - DECREASED APPETITE [None]
  - JOINT INJURY [None]
  - MUSCULOSKELETAL PAIN [None]
  - PANCREATIC DISORDER [None]
  - POOR QUALITY SLEEP [None]
  - PYREXIA [None]
  - RASH [None]
  - ROAD TRAFFIC ACCIDENT [None]
  - WEIGHT DECREASED [None]
  - WHIPLASH INJURY [None]
